FAERS Safety Report 16658791 (Version 1)
Quarter: 2019Q3

REPORT INFORMATION
  Report Type: Report from Study
  Country: US (occurrence: US)
  Receive Date: 20190801
  Receipt Date: 20190801
  Transmission Date: 20191004
  Serious: Yes (Hospitalization)
  Sender: FDA-Public Use
  Company Number: US-ACTELION-A-US2017-157218

PATIENT
  Age: 55 Year
  Sex: Female

DRUGS (13)
  1. SEVELAMER [Concomitant]
     Active Substance: SEVELAMER
  2. COREG [Concomitant]
     Active Substance: CARVEDILOL
  3. SODIUM BICARBONATE. [Concomitant]
     Active Substance: SODIUM BICARBONATE
  4. FOLIC ACID. [Concomitant]
     Active Substance: FOLIC ACID
  5. SODIUM POLYETHYLENE SULFONATE [Concomitant]
     Dosage: UNK U, UNK
  6. DICYCLOMINE [Concomitant]
     Active Substance: DICYCLOMINE HYDROCHLORIDE
  7. OPSUMIT [Suspect]
     Active Substance: MACITENTAN
     Indication: PULMONARY ARTERIAL HYPERTENSION
     Dosage: 10 MG, QD
     Route: 048
     Dates: start: 20170725
  8. VITAMIN D WITH OMEGA 3 [Concomitant]
     Dosage: 50000 U, UNK
  9. FLUDROCORTISONE [Concomitant]
     Active Substance: FLUDROCORTISONE
  10. MONTELUKAST [Concomitant]
     Active Substance: MONTELUKAST SODIUM
     Dosage: 10 MG, UNK
  11. NORVASC [Concomitant]
     Active Substance: AMLODIPINE BESYLATE
  12. CHOLESTYRAMIN [Concomitant]
     Active Substance: CHOLESTYRAMINE
  13. FUROSEMIDE. [Concomitant]
     Active Substance: FUROSEMIDE

REACTIONS (8)
  - Heart rate decreased [Recovered/Resolved]
  - Nausea [Unknown]
  - Cardiac failure congestive [Unknown]
  - Diarrhoea [Unknown]
  - Hypotension [Recovered/Resolved]
  - Abdominal pain upper [Unknown]
  - Chest pain [Not Recovered/Not Resolved]
  - Vomiting [Unknown]

NARRATIVE: CASE EVENT DATE: 20181024
